FAERS Safety Report 6137248-4 (Version None)
Quarter: 2009Q1

REPORT INFORMATION
  Report Type: 
  Country: None (occurrence: None)
  Receive Date: 20090326
  Receipt Date: 20090326
  Transmission Date: 20090719
  Serious: Yes (Hospitalization)
  Sender: FDA-Public Use
  Company Number: None

PATIENT
  Age: 55 Year
  Sex: Female
  Weight: 64.4108 kg

DRUGS (3)
  1. LIDODERM [Suspect]
     Indication: NECK PAIN
     Dosage: HALF A PATCH APPLIED ONCE TRANSDERMAL
     Route: 062
     Dates: start: 20090323, end: 20090324
  2. LIDODERM [Suspect]
     Indication: PROCEDURAL PAIN
     Dosage: HALF A PATCH APPLIED ONCE TRANSDERMAL
     Route: 062
     Dates: start: 20090323, end: 20090324
  3. HYDROCODONE BITARTRATE [Concomitant]

REACTIONS (2)
  - CHEST PAIN [None]
  - DYSPNOEA [None]
